FAERS Safety Report 7821083 (Version 5)
Quarter: 2013Q4

REPORT INFORMATION
  Report Type: Report from Study
  Country: JP (occurrence: JP)
  Receive Date: 20110222
  Receipt Date: 20131206
  Transmission Date: 20140711
  Serious: Yes (Hospitalization)
  Sender: FDA-Public Use
  Company Number: JP-PFIZER INC-2011033887

PATIENT
  Age: 88 Year
  Sex: Male
  Weight: 47.6 kg

DRUGS (12)
  1. EPIRUBICIN HCL [Suspect]
     Indication: HEPATOCELLULAR CARCINOMA
     Dosage: 30 MG, HEPATIC ARTERY ADMINISTRATION
     Route: 013
     Dates: start: 20101101, end: 20101101
  2. AZULFIDINE [Concomitant]
     Indication: OSTEOARTHRITIS
     Dosage: 1000 MG, 1X/DAY
  3. AMLODIN [Concomitant]
     Indication: HYPERTENSION
     Dosage: 5 MG, 1X/DAY
     Route: 048
  4. AMLODIN [Concomitant]
     Dosage: UNK
     Route: 048
     Dates: start: 20100303
  5. ALESION [Concomitant]
     Indication: ALLERGY PROPHYLAXIS
     Dosage: 20 MG, 1X/DAY
     Route: 048
  6. GASTER [Concomitant]
     Indication: GASTRITIS
     Dosage: 40 MG, 1X/DAY
  7. MUCOSTA [Concomitant]
     Indication: GASTRITIS
     Dosage: 300 MG, 1X/DAY
     Route: 048
  8. YODEL [Concomitant]
     Indication: CONSTIPATION
     Dosage: 160MG/DAY, 80MG/DAY
  9. SIMVASTATIN [Concomitant]
     Indication: HYPERLIPIDAEMIA
     Dosage: 5 MG, 1X/DAY
     Route: 048
  10. RENIVACE [Concomitant]
     Indication: HYPERTENSION
     Dosage: 5 MG, 1X/DAY
     Route: 048
  11. LENDORMIN [Concomitant]
     Indication: INSOMNIA
     Dosage: 0.5 MG, 1X/DAY
     Route: 048
  12. FLIVAS [Concomitant]
     Indication: POLLAKIURIA
     Dosage: 50 MG, 1X/DAY
     Route: 048

REACTIONS (3)
  - Biloma [Not Recovered/Not Resolved]
  - C-reactive protein increased [Not Recovered/Not Resolved]
  - Food poisoning [Recovered/Resolved]
